FAERS Safety Report 17027086 (Version 2)
Quarter: 2019Q4

REPORT INFORMATION
  Report Type: Report from Study
  Country: CO (occurrence: CO)
  Receive Date: 20191113
  Receipt Date: 20191203
  Transmission Date: 20200122
  Serious: Yes (Life-Threatening, Other)
  Sender: FDA-Public Use
  Company Number: CO-TAKEDA-2019TUS064379

PATIENT
  Age: 46 Year
  Sex: Male
  Weight: 74 kg

DRUGS (2)
  1. DALTEPARIN [Concomitant]
     Active Substance: DALTEPARIN
     Dosage: 2500 INTERNATIONAL UNIT, QD
     Route: 058
     Dates: start: 20191020
  2. PONATINIB [Suspect]
     Active Substance: PONATINIB
     Indication: CHRONIC MYELOID LEUKAEMIA
     Dosage: 45 MILLIGRAM, QD
     Route: 048
     Dates: start: 20191020

REACTIONS (2)
  - Leukocytosis [Unknown]
  - Chronic myeloid leukaemia [Unknown]

NARRATIVE: CASE EVENT DATE: 20191106
